FAERS Safety Report 22657136 (Version 1)
Quarter: 2023Q2

REPORT INFORMATION
  Report Type: Spontaneous
  Country: US (occurrence: US)
  Receive Date: 20230630
  Receipt Date: 20230630
  Transmission Date: 20230721
  Serious: No
  Sender: FDA-Public Use
  Company Number: US-Accord-290902

PATIENT
  Sex: Male
  Weight: 124.74 kg

DRUGS (1)
  1. CLONAZEPAM [Suspect]
     Active Substance: CLONAZEPAM
     Indication: Panic disorder
     Dosage: DAILY
     Route: 048
     Dates: start: 2017, end: 2019

REACTIONS (1)
  - Treatment noncompliance [Unknown]
